FAERS Safety Report 10042839 (Version 1)
Quarter: 2014Q1

REPORT INFORMATION
  Report Type: Spontaneous
  Country: US (occurrence: US)
  Receive Date: 20140327
  Receipt Date: 20140327
  Transmission Date: 20141002
  Serious: Yes (Other)
  Sender: FDA-Public Use
  Company Number: US-RB-064929-14

PATIENT
  Sex: Female

DRUGS (2)
  1. SUBOXONE FILM [Suspect]
     Indication: DRUG DEPENDENCE
     Dosage: SUBOXONE FILM
     Route: 060
     Dates: start: 2010
  2. MARIJUANA [Suspect]
     Indication: BACK PAIN
     Dosage: DOSING DETAILS UNKNOWN
     Route: 065
     Dates: start: 2014, end: 2014

REACTIONS (4)
  - Back pain [Not Recovered/Not Resolved]
  - Drug abuse [Recovered/Resolved]
  - Argininosuccinate lyase increased [Not Recovered/Not Resolved]
  - Alanine aminotransferase increased [Not Recovered/Not Resolved]
